FAERS Safety Report 6087299-3 (Version None)
Quarter: 2009Q1

REPORT INFORMATION
  Report Type: 
  Country: None (occurrence: None)
  Receive Date: 20090223
  Receipt Date: 20090213
  Transmission Date: 20090719
  Serious: Yes (Hospitalization)
  Sender: FDA-Public Use
  Company Number: A0763860A

PATIENT
  Age: 77 Year
  Sex: Female
  Weight: 71 kg

DRUGS (2)
  1. ROSIGLITAZONE [Suspect]
     Dosage: 2MG PER DAY
     Route: 048
     Dates: start: 20071226
  2. ARICEPT [Concomitant]
     Dosage: 10MG PER DAY
     Route: 048
     Dates: start: 20070707

REACTIONS (14)
  - ACUTE MYOCARDIAL INFARCTION [None]
  - COAGULOPATHY [None]
  - CORONARY ARTERY OCCLUSION [None]
  - DELIRIUM [None]
  - ELECTROLYTE IMBALANCE [None]
  - HAEMATOMA [None]
  - MELAENA [None]
  - PLATELET COUNT INCREASED [None]
  - PLEURAL EFFUSION [None]
  - PYELONEPHRITIS [None]
  - RESPIRATORY FAILURE [None]
  - SEPSIS [None]
  - SPLENIC ABSCESS [None]
  - WHITE BLOOD CELL COUNT INCREASED [None]
